FAERS Safety Report 18293167 (Version 1)
Quarter: 2020Q3

REPORT INFORMATION
  Report Type: Other
  Country: CA (occurrence: CA)
  Receive Date: 20200922
  Receipt Date: 20200922
  Transmission Date: 20201103
  Serious: Yes (Other)
  Sender: FDA-Public Use
  Company Number: CA-CELLTRION INC.-2020CA026023

PATIENT

DRUGS (2)
  1. RITUXIMAB (UNKNOWN) [Suspect]
     Active Substance: RITUXIMAB
     Indication: RETROPERITONEAL FIBROSIS
     Dosage: 1000.0 MG
     Route: 042
  2. PREDNISONE. [Concomitant]
     Active Substance: PREDNISONE
     Indication: RETROPERITONEAL FIBROSIS
     Route: 065

REACTIONS (3)
  - Thrombosis [Unknown]
  - Intentional product use issue [Unknown]
  - Off label use [Unknown]
